FAERS Safety Report 7003329-6 (Version None)
Quarter: 2010Q3

REPORT INFORMATION
  Report Type: 
  Country: None (occurrence: None)
  Receive Date: 20100920
  Receipt Date: 20100813
  Transmission Date: 20110219
  Serious: No
  Sender: FDA-Public Use
  Company Number: A0877283A

PATIENT

DRUGS (2)
  1. LAMICTAL [Suspect]
     Indication: PRODUCT USED FOR UNKNOWN INDICATION
     Dosage: 600MG UNKNOWN
     Route: 048
  2. VITAMIN D [Concomitant]

REACTIONS (1)
  - ANTICONVULSANT DRUG LEVEL DECREASED [None]
